FAERS Safety Report 10201120 (Version 2)
Quarter: 2014Q2

REPORT INFORMATION
  Report Type: Spontaneous
  Country: US (occurrence: US)
  Receive Date: 20140528
  Receipt Date: 20140528
  Transmission Date: 20141212
  Serious: No
  Sender: FDA-Public Use
  Company Number: US-PFIZER INC-2014103720

PATIENT
  Age: 50 Year
  Sex: Male

DRUGS (1)
  1. VFEND [Suspect]
     Indication: BRONCHOPULMONARY ASPERGILLOSIS
     Dosage: 350 MG, 2X/DAY
     Route: 048
     Dates: start: 20130815

REACTIONS (2)
  - Incorrect dosage administered [Unknown]
  - Visual impairment [Not Recovered/Not Resolved]
